FAERS Safety Report 10301528 (Version 1)
Quarter: 2014Q3

REPORT INFORMATION
  Report Type: Spontaneous
  Country: US (occurrence: None)
  Receive Date: 20140709
  Receipt Date: 20140709
  Transmission Date: 20150326
  Serious: Yes (Other)
  Sender: FDA-Public Use
  Company Number: None

PATIENT
  Age: 64 Year
  Sex: Female

DRUGS (1)
  1. CAPECITABINE [Suspect]
     Active Substance: CAPECITABINE
     Indication: BREAST CANCER
     Route: 048
     Dates: start: 20140605

REACTIONS (5)
  - Palpitations [None]
  - Dyspnoea [None]
  - Mouth ulceration [None]
  - Pain in extremity [None]
  - Erythema [None]

NARRATIVE: CASE EVENT DATE: 201406
